FAERS Safety Report 21652831 (Version 2)
Quarter: 2022Q4

REPORT INFORMATION
  Report Type: Spontaneous
  Country: JP (occurrence: JP)
  Receive Date: 20221128
  Receipt Date: 20221226
  Transmission Date: 20230113
  Serious: Yes (Hospitalization, Other)
  Sender: FDA-Public Use
  Company Number: JP-GLAXOSMITHKLINE-JP2022JPN173569

PATIENT

DRUGS (2)
  1. ZOVIRAX [Suspect]
     Active Substance: ACYCLOVIR
     Indication: Meningitis viral
     Dosage: UNK
  2. VALTREX [Suspect]
     Active Substance: VALACYCLOVIR HYDROCHLORIDE
     Indication: Herpes zoster
     Dosage: UNK

REACTIONS (11)
  - Toxic encephalopathy [Unknown]
  - Guillain-Barre syndrome [Unknown]
  - Depressed level of consciousness [Recovering/Resolving]
  - Altered state of consciousness [Recovering/Resolving]
  - Paralysis [Unknown]
  - Quadriplegia [Unknown]
  - Areflexia [Unknown]
  - Dyslalia [Unknown]
  - Hemiplegia [Unknown]
  - Dysphagia [Unknown]
  - Herpes zoster meningoencephalitis [Unknown]
